FAERS Safety Report 4677706-2 (Version None)
Quarter: 2005Q2

REPORT INFORMATION
  Report Type: 
  Country: None (occurrence: None)
  Receive Date: 20050527
  Receipt Date: 20050516
  Transmission Date: 20051028
  Serious: Yes (Other)
  Sender: FDA-Public Use
  Company Number: HQWYE774618MAY05

PATIENT
  Age: 73 Year
  Sex: Female

DRUGS (3)
  1. AMIODARONE (AMIODARONE, INJECTION) [Suspect]
     Indication: ATRIAL FIBRILLATION
     Dosage: LOADING DOSE AT 5 MG/MINUTE, INTRAVENOUS
     Route: 042
  2. DILTIAZEM [Concomitant]
  3. ASPIRIN [Concomitant]

REACTIONS (2)
  - BACK PAIN [None]
  - URTICARIA [None]
